FAERS Safety Report 17652458 (Version 1)
Quarter: 2020Q2

REPORT INFORMATION
  Report Type: Other
  Country: TW (occurrence: TW)
  Receive Date: 20200409
  Receipt Date: 20200409
  Transmission Date: 20200713
  Serious: Yes (Hospitalization, Other)
  Sender: FDA-Public Use
  Company Number: TW-INVATECH-000006

PATIENT
  Age: 45 Year
  Sex: Male

DRUGS (1)
  1. SODIUM POLYSTYRENE SULFONATE. [Suspect]
     Active Substance: SODIUM POLYSTYRENE SULFONATE
     Indication: HYPERKALAEMIA

REACTIONS (2)
  - Aspiration [Recovered/Resolved]
  - Acute respiratory distress syndrome [Recovered/Resolved]
